FAERS Safety Report 5236438-2 (Version None)
Quarter: 2007Q1

REPORT INFORMATION
  Report Type: 
  Country: None (occurrence: None)
  Receive Date: 20070212
  Receipt Date: 20070202
  Transmission Date: 20070707
  Serious: Yes (Death, Life-Threatening)
  Sender: FDA-Public Use
  Company Number: GB-PFIZER INC-2007010018

PATIENT
  Age: 37 Year
  Sex: Male

DRUGS (3)
  1. SOMATROPIN [Suspect]
     Route: 058
     Dates: start: 20050628, end: 20060415
  2. DEXAMETHASONE [Concomitant]
  3. TEGRETOL [Concomitant]

REACTIONS (2)
  - CONDITION AGGRAVATED [None]
  - TERATOMA [None]
